FAERS Safety Report 17593044 (Version 16)
Quarter: 2020Q3

REPORT INFORMATION
  Report Type: Report from Study
  Country: AU (occurrence: AU)
  Receive Date: 20200327
  Receipt Date: 20200903
  Transmission Date: 20201102
  Serious: Yes (Death, Hospitalization)
  Sender: FDA-Public Use
  Company Number: AU-EISAI MEDICAL RESEARCH-EC-2020-072359

PATIENT
  Age: 74 Year
  Sex: Female
  Weight: 55.35 kg

DRUGS (15)
  1. SLOW?K [Concomitant]
     Active Substance: POTASSIUM CHLORIDE
     Dates: start: 20200121, end: 20200324
  2. MOVICOL [Concomitant]
     Active Substance: POLYETHYLENE GLYCOL 3350\POTASSIUM CHLORIDE\SODIUM BICARBONATE\SODIUM CHLORIDE
     Dates: start: 20200211, end: 20200408
  3. CYANOCOBALAMIN. [Concomitant]
     Active Substance: CYANOCOBALAMIN
     Dates: start: 201902, end: 20200324
  4. LENVATINIB [Suspect]
     Active Substance: LENVATINIB
     Route: 048
     Dates: start: 20200320, end: 20200320
  5. CLINDAMYCIN. [Suspect]
     Active Substance: CLINDAMYCIN
     Indication: TOOTH INFECTION
     Route: 048
     Dates: start: 20200320, end: 20200320
  6. KEFLEX [Concomitant]
     Active Substance: CEPHALEXIN
     Dates: start: 20200227, end: 20200310
  7. LENVATINIB [Suspect]
     Active Substance: LENVATINIB
     Indication: ENDOMETRIAL CANCER
     Dosage: STARTING AT 20 MILLIGRAM (FLUCTUATING DOSE)
     Route: 048
     Dates: start: 20191029, end: 20200319
  8. PEMBROLIZUMAB. [Suspect]
     Active Substance: PEMBROLIZUMAB
     Indication: ENDOMETRIAL CANCER
     Route: 041
     Dates: start: 20191029, end: 20200212
  9. INDAPAMIDE. [Concomitant]
     Active Substance: INDAPAMIDE
     Dates: start: 20191118, end: 20200324
  10. PEMBROLIZUMAB. [Suspect]
     Active Substance: PEMBROLIZUMAB
     Route: 041
     Dates: start: 20200304, end: 20200304
  11. LIPITOR [Concomitant]
     Active Substance: ATORVASTATIN CALCIUM
     Dates: start: 201601, end: 20200324
  12. PERINDOPRIL [Concomitant]
     Active Substance: PERINDOPRIL
     Dates: start: 20191102, end: 20200324
  13. NEXIUM [Concomitant]
     Active Substance: ESOMEPRAZOLE MAGNESIUM
     Dates: start: 20190902
  14. VITAMIN D [Concomitant]
     Active Substance: VITAMIN D NOS
     Dates: start: 201603, end: 20200324
  15. CRANBERRY. [Concomitant]
     Active Substance: CRANBERRY
     Dates: start: 201903, end: 20190324

REACTIONS (2)
  - Vomiting [Recovered/Resolved]
  - Adrenal insufficiency [Not Recovered/Not Resolved]

NARRATIVE: CASE EVENT DATE: 20200320
